FAERS Safety Report 5494167-4 (Version None)
Quarter: 2007Q4

REPORT INFORMATION
  Report Type: 
  Country: None (occurrence: None)
  Receive Date: 20071023
  Receipt Date: 20071023
  Transmission Date: 20080405
  Serious: Yes (Other)
  Sender: FDA-Public Use
  Company Number: None

PATIENT
  Age: 45 Year
  Sex: Female
  Weight: 55.3388 kg

DRUGS (2)
  1. KETOROLAC TROMETHAMINE  DRUGS REG.   ST.FRANCIS HOSP. ER POK.NY [Suspect]
     Indication: DRUG THERAPY
     Dosage: METHOCARBAMOL   500MG
     Dates: start: 20050215, end: 20050215
  2. NABUMETONE [Suspect]
     Dates: start: 20050215, end: 20050615

REACTIONS (7)
  - ABASIA [None]
  - BACK PAIN [None]
  - DYSSTASIA [None]
  - INCOHERENT [None]
  - INTERVERTEBRAL DISC DEGENERATION [None]
  - STRESS [None]
  - URINARY INCONTINENCE [None]
